FAERS Safety Report 6382117-8 (Version None)
Quarter: 2009Q3

REPORT INFORMATION
  Report Type: 
  Country: None (occurrence: None)
  Receive Date: 20090930
  Receipt Date: 20090923
  Transmission Date: 20100115
  Serious: Yes (Hospitalization)
  Sender: FDA-Public Use
  Company Number: PHEH2009US05710

PATIENT
  Sex: Female

DRUGS (1)
  1. EXJADE [Suspect]
     Dosage: 1250 UNK, QD
     Dates: start: 20090522

REACTIONS (3)
  - COLON OPERATION [None]
  - INTESTINAL MASS [None]
  - RECTAL HAEMORRHAGE [None]
